FAERS Safety Report 8050660-1 (Version None)
Quarter: 2012Q1

REPORT INFORMATION
  Report Type: 
  Country: None (occurrence: None)
  Receive Date: 20120117
  Receipt Date: 20120112
  Transmission Date: 20120608
  Serious: Yes (Hospitalization)
  Sender: FDA-Public Use
  Company Number: US-B.I. PHARMACEUTICALS,INC./RIDGEFIELD-2012-BP-00656BP

PATIENT
  Age: 54 Year
  Sex: Female

DRUGS (2)
  1. MELOXICAM [Concomitant]
     Dosage: 7.5 MG
     Route: 048
  2. PRADAXA [Suspect]
     Indication: ATRIAL FIBRILLATION
     Dosage: 300 MG
     Route: 048

REACTIONS (7)
  - HAEMATOMA [None]
  - HAEMATOCHEZIA [None]
  - CEREBROVASCULAR ACCIDENT [None]
  - DIZZINESS [None]
  - GASTRIC ULCER HAEMORRHAGE [None]
  - FALL [None]
  - GASTRIC ULCER [None]
